FAERS Safety Report 10502344 (Version 1)
Quarter: 2014Q3

REPORT INFORMATION
  Report Type: Spontaneous
  Country: US (occurrence: None)
  Receive Date: 20140815
  Receipt Date: 20140815
  Transmission Date: 20150326
  Serious: Yes (Other)
  Sender: FDA-Public Use
  Company Number: ADR-2013-01155

PATIENT
  Sex: Female

DRUGS (5)
  1. BACLOFEN. [Suspect]
     Active Substance: BACLOFEN
     Indication: PAIN
  2. CLONIDINE. [Concomitant]
     Active Substance: CLONIDINE
  3. HYDROMORPHONE [Concomitant]
     Active Substance: HYDROMORPHONE
  4. PRIALT [Suspect]
     Active Substance: ZICONOTIDE ACETATE
  5. BUPIVACAINE [Concomitant]
     Active Substance: BUPIVACAINE

REACTIONS (1)
  - Malaise [None]
